FAERS Safety Report 6902552-6 (Version None)
Quarter: 2010Q3

REPORT INFORMATION
  Report Type: 
  Country: None (occurrence: None)
  Receive Date: 20100730
  Receipt Date: 20100722
  Transmission Date: 20110219
  Serious: Yes (Other)
  Sender: FDA-Public Use
  Company Number: DSA_43156_2010

PATIENT
  Sex: Female
  Weight: 60.782 kg

DRUGS (9)
  1. XENAZINE [Suspect]
     Indication: DYSTONIA
     Dosage: (12.5 MG TID ORAL)
     Route: 048
     Dates: start: 20100408, end: 20100503
  2. LIPITOR [Concomitant]
  3. ALBUTEROL [Concomitant]
  4. TRIHEXYPHENIDYL HCL [Concomitant]
  5. NEXIUM [Concomitant]
  6. FLOVENT [Concomitant]
  7. PROAIR HFA [Concomitant]
  8. MULTI-VITAMINS [Concomitant]
  9. CLONAZEPAM [Concomitant]

REACTIONS (5)
  - AMNESIA [None]
  - FEELING ABNORMAL [None]
  - MUSCLE SPASMS [None]
  - PSYCHOTIC DISORDER [None]
  - RASH MACULAR [None]
